FAERS Safety Report 15415950 (Version 1)
Quarter: 2018Q3

REPORT INFORMATION
  Report Type: Report from Study
  Country: US (occurrence: US)
  Receive Date: 20180923
  Receipt Date: 20180923
  Transmission Date: 20181010
  Serious: Yes (Other)
  Sender: FDA-Public Use
  Company Number: US-UCBSA-2018040452

PATIENT
  Age: 10 Year
  Sex: Male
  Weight: 45.35 kg

DRUGS (1)
  1. LEVETIRACETAM. [Suspect]
     Active Substance: LEVETIRACETAM
     Indication: SEIZURE
     Dosage: 250 MG IN THE AM AND 500 MG IN THE PM

REACTIONS (2)
  - Generalised tonic-clonic seizure [Unknown]
  - Intentional product misuse [Unknown]
